FAERS Safety Report 7972991-3 (Version None)
Quarter: 2011Q4

REPORT INFORMATION
  Report Type: 
  Country: None (occurrence: None)
  Receive Date: 20111213
  Receipt Date: 20111208
  Transmission Date: 20120403
  Serious: Yes (Hospitalization, Other)
  Sender: FDA-Public Use
  Company Number: FR-PFIZER INC-2011299330

PATIENT
  Age: 59 Year
  Sex: Male

DRUGS (6)
  1. VANCOMYCIN [Suspect]
     Dosage: 3 G DAILY
     Dates: start: 20110915, end: 20111021
  2. POTASSIUM CHLORIDE [Suspect]
     Dosage: UNK
     Route: 048
     Dates: start: 20110915, end: 20111021
  3. LYRICA [Suspect]
     Dosage: 75 MG, 1X/DAY
     Route: 048
     Dates: start: 20110915, end: 20111021
  4. NEXIUM [Suspect]
     Dosage: 40 MG, 1X/DAY
     Route: 048
     Dates: start: 20110915, end: 20111021
  5. ALLOPURINOL [Suspect]
     Dosage: 200 MG, 1X/DAY
     Dates: start: 20110915, end: 20111021
  6. FOSFOMYCIN [Suspect]
     Dosage: 4 G DAILY
     Dates: start: 20110915, end: 20111021

REACTIONS (2)
  - NEUTROPENIA [None]
  - RASH MACULO-PAPULAR [None]
